FAERS Safety Report 8970500 (Version 1)
Quarter: 2012Q4

REPORT INFORMATION
  Report Type: 
  Country: US (occurrence: US)
  Receive Date: 20121217
  Receipt Date: 20121217
  Transmission Date: 20130627
  Serious: No
  Sender: FDA-Public Use
  Company Number: US-009507513-1212USA004676

PATIENT
  Age: 27 Year
  Sex: Female

DRUGS (1)
  1. AFRIN [Suspect]
     Indication: NASAL CONGESTION
     Dosage: UNK, Unknown
     Route: 048

REACTIONS (3)
  - Choking sensation [Unknown]
  - Accidental exposure to product [Unknown]
  - Drug ineffective [Unknown]
